FAERS Safety Report 26189140 (Version 1)
Quarter: 2025Q4

REPORT INFORMATION
  Report Type: Spontaneous
  Country: US (occurrence: US)
  Receive Date: 20251223
  Receipt Date: 20251223
  Transmission Date: 20260117
  Serious: No
  Sender: AUROBINDO
  Company Number: US-AUROBINDO-AUR-APL-2024-062485

PATIENT

DRUGS (1)
  1. AMOXICILLIN [Suspect]
     Active Substance: AMOXICILLIN
     Indication: Product used for unknown indication
     Dosage: UNK
     Route: 065

REACTIONS (10)
  - Anxiety [Unknown]
  - Diarrhoea [Unknown]
  - Dyspnoea [Unknown]
  - Dyspepsia [Unknown]
  - Erythema [Unknown]
  - Heart rate increased [Unknown]
  - Insomnia [Unknown]
  - Nausea [Unknown]
  - Manufacturing issue [Unknown]
  - Product substitution issue [Unknown]
